FAERS Safety Report 19129108 (Version 1)
Quarter: 2021Q2

REPORT INFORMATION
  Report Type: Spontaneous
  Country: ES (occurrence: ES)
  Receive Date: 20210413
  Receipt Date: 20210413
  Transmission Date: 20210717
  Serious: Yes (Hospitalization)
  Sender: FDA-Public Use
  Company Number: ES-OTSUKA-2021_011965

PATIENT
  Age: 16 Year
  Sex: Female

DRUGS (11)
  1. ABILIFY MAINTENA [Suspect]
     Active Substance: ARIPIPRAZOLE
     Indication: OBSESSIVE-COMPULSIVE DISORDER
  2. SERTRALINE [Suspect]
     Active Substance: SERTRALINE HYDROCHLORIDE
     Indication: OBSESSIVE-COMPULSIVE DISORDER
  3. QUETIAPINE. [Suspect]
     Active Substance: QUETIAPINE
     Indication: ANOREXIA NERVOSA
     Dosage: 200 MG, QD EVERY 24 H
     Route: 065
  4. BROMAZEPAM [Suspect]
     Active Substance: BROMAZEPAM
     Indication: ANOREXIA NERVOSA
     Dosage: 1.5 MG, QD EVERY 24 H
     Route: 065
  5. ARIPIPRAZOLE. [Suspect]
     Active Substance: ARIPIPRAZOLE
     Indication: ANOREXIA NERVOSA
     Dosage: 10 MG, QD EVERY 24 H
     Route: 048
  6. SERTRALINE [Suspect]
     Active Substance: SERTRALINE HYDROCHLORIDE
     Indication: ANOREXIA NERVOSA
     Dosage: 200 MG, QD EVERY 24 H
     Route: 065
  7. ARIPIPRAZOLE. [Suspect]
     Active Substance: ARIPIPRAZOLE
     Indication: OBSESSIVE-COMPULSIVE DISORDER
     Dosage: 5 MG, QD EVERY 24 H
     Route: 048
  8. QUETIAPINE. [Suspect]
     Active Substance: QUETIAPINE
     Indication: OBSESSIVE-COMPULSIVE DISORDER
  9. BROMAZEPAM [Suspect]
     Active Substance: BROMAZEPAM
     Indication: OBSESSIVE-COMPULSIVE DISORDER
  10. ARIPIPRAZOLE. [Suspect]
     Active Substance: ARIPIPRAZOLE
     Dosage: 15 MG, QD EVERY 24 H
     Route: 048
  11. ABILIFY MAINTENA [Suspect]
     Active Substance: ARIPIPRAZOLE
     Indication: ANOREXIA NERVOSA
     Dosage: 400 MG, QM
     Route: 065

REACTIONS (13)
  - Psychomotor hyperactivity [Recovered/Resolved]
  - Abulia [Recovered/Resolved]
  - Depersonalisation/derealisation disorder [Recovered/Resolved]
  - Fear of weight gain [Recovered/Resolved]
  - Anxiety [Recovered/Resolved]
  - Self-injurious ideation [Recovered/Resolved]
  - Asthenia [Recovered/Resolved]
  - Product use in unapproved indication [Unknown]
  - Apathy [Recovered/Resolved]
  - Irritability [Recovered/Resolved]
  - Violence-related symptom [Recovered/Resolved]
  - Intentional self-injury [Recovered/Resolved]
  - Obsessive-compulsive disorder [Recovered/Resolved]
